FAERS Safety Report 12756805 (Version 3)
Quarter: 2016Q4

REPORT INFORMATION
  Report Type: Spontaneous
  Country: JP (occurrence: JP)
  Receive Date: 20160917
  Receipt Date: 20161022
  Transmission Date: 20170207
  Serious: Yes (Hospitalization)
  Sender: FDA-Public Use
  Company Number: JP-AMGEN-JPNSP2016126673

PATIENT
  Age: 68 Year
  Sex: Male
  Weight: 63.4 kg

DRUGS (16)
  1. VECTIBIX [Suspect]
     Active Substance: PANITUMUMAB
     Indication: RECTAL CANCER RECURRENT
     Dosage: 400 MG, Q2WK
     Route: 041
     Dates: start: 20160905, end: 20160905
  2. VECTIBIX [Suspect]
     Active Substance: PANITUMUMAB
     Dosage: 400 MG, Q2WK
     Route: 041
     Dates: start: 20160926
  3. CAMPTO [Concomitant]
     Active Substance: IRINOTECAN
     Indication: RECTAL CANCER RECURRENT
     Dosage: UNK
     Route: 041
  4. 5-FU                               /00098801/ [Concomitant]
     Active Substance: FLUOROURACIL
     Dosage: 718 MG, Q2WK
     Route: 040
     Dates: start: 20160905, end: 20160905
  5. GRANISETRON                        /01178102/ [Concomitant]
     Active Substance: GRANISETRON
     Dosage: 3 MG, UNK
     Route: 041
     Dates: start: 20160905, end: 20160905
  6. CALCIUM LEVOFOLINATE [Concomitant]
     Active Substance: LEVOLEUCOVORIN CALCIUM
     Indication: RECTAL CANCER RECURRENT
     Dosage: UNK
     Route: 041
  7. CALCIUM LEVOFOLINATE [Concomitant]
     Active Substance: LEVOLEUCOVORIN CALCIUM
     Dosage: 359 MG, Q2WEEKS
     Route: 041
     Dates: start: 20160926
  8. DECADRON                           /00016002/ [Concomitant]
     Active Substance: DEXAMETHASONE
     Dosage: 6.6 MG, UNK
     Route: 041
     Dates: start: 20160905, end: 20160905
  9. 5-FU                               /00098801/ [Concomitant]
     Active Substance: FLUOROURACIL
     Dosage: UNK
     Route: 041
  10. CAMPTO [Concomitant]
     Active Substance: IRINOTECAN
     Dosage: 269 MG, Q2WEEKS
     Route: 041
     Dates: start: 20160905, end: 20160905
  11. CAMPTO [Concomitant]
     Active Substance: IRINOTECAN
     Dosage: 269 MG, Q2WEEKS
     Route: 041
     Dates: start: 20160926
  12. 5-FU                               /00098801/ [Concomitant]
     Active Substance: FLUOROURACIL
     Indication: RECTAL CANCER RECURRENT
     Dosage: UNK
     Route: 040
  13. 5-FU                               /00098801/ [Concomitant]
     Active Substance: FLUOROURACIL
     Dosage: 3300 MG, Q2WEEKS
     Route: 041
     Dates: start: 20160905, end: 20160905
  14. 5-FU                               /00098801/ [Concomitant]
     Active Substance: FLUOROURACIL
     Dosage: 718 MG, Q2WK
     Route: 040
     Dates: start: 20160926
  15. 5-FU                               /00098801/ [Concomitant]
     Active Substance: FLUOROURACIL
     Dosage: 3300 MG, Q2WEEKS
     Route: 041
     Dates: start: 20160926
  16. CALCIUM LEVOFOLINATE [Concomitant]
     Active Substance: LEVOLEUCOVORIN CALCIUM
     Dosage: 359 MG, Q2WEEKS
     Route: 041
     Dates: start: 20160905, end: 20160905

REACTIONS (2)
  - Melaena [Recovering/Resolving]
  - Colitis ischaemic [Recovering/Resolving]

NARRATIVE: CASE EVENT DATE: 20160908
